FAERS Safety Report 4595173-4 (Version None)
Quarter: 2005Q1

REPORT INFORMATION
  Report Type: 
  Country: None (occurrence: None)
  Receive Date: 20050223
  Receipt Date: 20050215
  Transmission Date: 20050727
  Serious: Yes (Hospitalization)
  Sender: FDA-Public Use
  Company Number: 2005031768

PATIENT
  Age: 44 Year
  Sex: Female

DRUGS (8)
  1. DILANTIN KAPSEAL [Suspect]
     Indication: ILL-DEFINED DISORDER
     Dosage: 400 MG (100 MG, 2 IN 1 D), ORAL
     Route: 048
  2. LAMOTRIGINE [Concomitant]
  3. GUAIFENESIN (GUAIFENESIN) [Concomitant]
  4. ALL OTHER THERAPEUTIC PRODUCTS (ALL OTHER THERAPEUTIC PRODUCTS) [Concomitant]
  5. LORAZEPAM [Concomitant]
  6. LORATADINE [Concomitant]
  7. IBUPROFEN [Concomitant]
  8. RISPERDAL [Concomitant]

REACTIONS (1)
  - ANTICONVULSANT DRUG LEVEL INCREASED [None]
